FAERS Safety Report 17872220 (Version 2)
Quarter: 2020Q2

REPORT INFORMATION
  Report Type: Spontaneous
  Country: DE (occurrence: DE)
  Receive Date: 20200608
  Receipt Date: 20200629
  Transmission Date: 20200714
  Serious: Yes (Disabling)
  Sender: FDA-Public Use
  Company Number: DE-ELI_LILLY_AND_COMPANY-DE202004012087

PATIENT
  Age: 63 Year
  Sex: Female
  Weight: 100 kg

DRUGS (4)
  1. METFORMIN [Concomitant]
     Active Substance: METFORMIN HYDROCHLORIDE
     Dosage: UNK, UNKNOWN
     Route: 065
     Dates: end: 202003
  2. INSULIN [Concomitant]
     Active Substance: INSULIN NOS
     Dosage: UNK, UNKNOWN
     Route: 065
     Dates: end: 202003
  3. ZYPREXA [Suspect]
     Active Substance: OLANZAPINE
     Indication: PRODUCT USED FOR UNKNOWN INDICATION
     Dosage: UNK, UNKNOWN
     Route: 065
     Dates: start: 2009, end: 202003
  4. JARDIANCE [Concomitant]
     Active Substance: EMPAGLIFLOZIN
     Dosage: UNK, UNKNOWN
     Route: 065
     Dates: end: 202003

REACTIONS (10)
  - Epilepsy [Recovering/Resolving]
  - Overweight [Recovering/Resolving]
  - Apathy [Recovering/Resolving]
  - Bruxism [Recovering/Resolving]
  - Anger [Recovering/Resolving]
  - Parkinson^s disease [Recovering/Resolving]
  - Insomnia [Recovering/Resolving]
  - Mental disorder [Recovering/Resolving]
  - Dysgraphia [Recovering/Resolving]
  - Type 2 diabetes mellitus [Recovering/Resolving]

NARRATIVE: CASE EVENT DATE: 2009
